FAERS Safety Report 13015794 (Version 1)
Quarter: 2016Q4

REPORT INFORMATION
  Report Type: Spontaneous
  Country: GB (occurrence: GB)
  Receive Date: 20161212
  Receipt Date: 20161212
  Transmission Date: 20170207
  Serious: Yes (Life-Threatening, Hospitalization)
  Sender: FDA-Public Use
  Company Number: GB-ACCORD-046223

PATIENT
  Age: 45 Year
  Sex: Female

DRUGS (11)
  1. OMEPRAZOLE. [Concomitant]
     Active Substance: OMEPRAZOLE
  2. PARACETAMOL [Concomitant]
     Active Substance: ACETAMINOPHEN
  3. HYOSCINE [Concomitant]
     Active Substance: SCOPOLAMINE
  4. NAPROXEN. [Concomitant]
     Active Substance: NAPROXEN
  5. PREGABALIN. [Concomitant]
     Active Substance: PREGABALIN
  6. QUETIAPINE/QUETIAPINE FUMARATE [Concomitant]
  7. VENLAFAXINE/VENLAFAXINE HYDROCHLORIDE [Concomitant]
  8. BUTRANS [Concomitant]
     Active Substance: BUPRENORPHINE
  9. TAPENTADOL [Concomitant]
     Active Substance: TAPENTADOL
  10. CODEINE [Suspect]
     Active Substance: CODEINE
     Indication: PRODUCT USED FOR UNKNOWN INDICATION
     Route: 048
     Dates: start: 20161114, end: 20161116
  11. TRAMADOL/TRAMADOL HYDROCHLORIDE [Suspect]
     Active Substance: TRAMADOL HYDROCHLORIDE
     Indication: PRODUCT USED FOR UNKNOWN INDICATION
     Route: 048
     Dates: start: 20161114, end: 20161116

REACTIONS (6)
  - Somnolence [Recovering/Resolving]
  - Constipation [Unknown]
  - Accidental overdose [Unknown]
  - Confusional state [Recovering/Resolving]
  - Drug dispensed to wrong patient [Unknown]
  - Malaise [Unknown]

NARRATIVE: CASE EVENT DATE: 20161115
